FAERS Safety Report 22292373 (Version 1)
Quarter: 2023Q2

REPORT INFORMATION
  Report Type: Spontaneous
  Country: US (occurrence: US)
  Receive Date: 20230508
  Receipt Date: 20230508
  Transmission Date: 20230722
  Serious: No
  Sender: FDA-Public Use
  Company Number: US-AUROBINDO-AUR-APL-2023-003994

PATIENT
  Age: 51 Year
  Sex: Female
  Weight: 79.3 kg

DRUGS (1)
  1. DEXTROMETHORPHAN\GUAIFENESIN [Suspect]
     Active Substance: DEXTROMETHORPHAN\GUAIFENESIN
     Indication: Nasopharyngitis
     Dosage: UNK(ONLY TAKEN 01 PILL)
     Route: 065
     Dates: start: 20230121

REACTIONS (2)
  - Pain [Unknown]
  - Back pain [Unknown]

NARRATIVE: CASE EVENT DATE: 20230121
